FAERS Safety Report 13702977 (Version 2)
Quarter: 2017Q3

REPORT INFORMATION
  Report Type: Spontaneous
  Country: US (occurrence: US)
  Receive Date: 20170629
  Receipt Date: 20170801
  Transmission Date: 20171127
  Serious: No
  Sender: FDA-Public Use
  Company Number: US-ASTRAZENECA-2017SE67374

PATIENT
  Sex: Male
  Weight: 88 kg

DRUGS (1)
  1. BYDUREON [Suspect]
     Active Substance: EXENATIDE
     Indication: DIABETES MELLITUS
     Route: 058
     Dates: start: 201508

REACTIONS (4)
  - Product quality issue [Unknown]
  - Injection site nodule [Unknown]
  - Underdose [Unknown]
  - Intentional product misuse [Unknown]
